FAERS Safety Report 7369728-8 (Version None)
Quarter: 2011Q1

REPORT INFORMATION
  Report Type: 
  Country: None (occurrence: None)
  Receive Date: 20110323
  Receipt Date: 20101117
  Transmission Date: 20110831
  Serious: Yes (Hospitalization)
  Sender: FDA-Public Use
  Company Number: DE-CEPHALON-2011001337

PATIENT
  Sex: Female
  Weight: 95 kg

DRUGS (2)
  1. BENDAMUSTINE HCL [Suspect]
     Indication: SPLENIC MARGINAL ZONE LYMPHOMA
     Route: 042
     Dates: start: 20100531, end: 20100628
  2. MABTHERA [Concomitant]
     Indication: SPLENIC MARGINAL ZONE LYMPHOMA
     Dates: start: 20100531, end: 20100628

REACTIONS (2)
  - DYSPNOEA [None]
  - CHRONIC OBSTRUCTIVE PULMONARY DISEASE [None]
